FAERS Safety Report 13493534 (Version 2)
Quarter: 2017Q2

REPORT INFORMATION
  Report Type: Report from Study
  Country: US (occurrence: US)
  Receive Date: 20170427
  Receipt Date: 20170504
  Transmission Date: 20170830
  Serious: Yes (Death, Hospitalization)
  Sender: FDA-Public Use
  Company Number: US-ACTELION-A-NJ2016-146545

PATIENT
  Age: 78 Year
  Sex: Female

DRUGS (1)
  1. OPSUMIT [Suspect]
     Active Substance: MACITENTAN
     Indication: PULMONARY ARTERIAL HYPERTENSION
     Dosage: 10 MG, QD
     Route: 048
     Dates: start: 20161123

REACTIONS (9)
  - Pulmonary hypertension [Fatal]
  - Pulmonary fibrosis [Fatal]
  - Oropharyngeal pain [Unknown]
  - Headache [Unknown]
  - Oxygen saturation decreased [Unknown]
  - Rhinorrhoea [Unknown]
  - Respiratory failure [Fatal]
  - Disease progression [Fatal]
  - Influenza like illness [Unknown]

NARRATIVE: CASE EVENT DATE: 20161202
